FAERS Safety Report 7326038-2 (Version None)
Quarter: 2011Q1

REPORT INFORMATION
  Report Type: 
  Country: None (occurrence: None)
  Receive Date: 20110218
  Receipt Date: 20110209
  Transmission Date: 20110831
  Serious: Yes (Other)
  Sender: FDA-Public Use
  Company Number: 2010SP003558

PATIENT
  Age: 61 Year
  Sex: Female

DRUGS (9)
  1. PULMICORT [Concomitant]
  2. ADVAIR DISKUS 100/50 [Concomitant]
  3. VENTOLIN [Concomitant]
  4. PREDNISONE TAB [Concomitant]
  5. PREV. MEDS [Concomitant]
  6. SYMBICORT [Concomitant]
  7. TYLENOL-500 [Concomitant]
  8. ALVESCO [Suspect]
     Indication: CHRONIC OBSTRUCTIVE PULMONARY DISEASE
     Dosage: 400 MG, BID, INHALATION
     Route: 055
     Dates: start: 20100722
  9. ALVESCO [Suspect]
     Indication: CHRONIC OBSTRUCTIVE PULMONARY DISEASE
     Dosage: 400 MG, BID, INHALATION
     Route: 055
     Dates: start: 20090301

REACTIONS (4)
  - PNEUMONIA [None]
  - INSOMNIA [None]
  - RASH [None]
  - DRUG HYPERSENSITIVITY [None]
